FAERS Safety Report 11434460 (Version 1)
Quarter: 2015Q3

REPORT INFORMATION
  Report Type: Spontaneous
  Country: US (occurrence: None)
  Receive Date: 20150828
  Receipt Date: 20150828
  Transmission Date: 20151125
  Serious: No
  Sender: FDA-Public Use
  Company Number: None

PATIENT
  Age: 77 Year
  Sex: Female
  Weight: 72.58 kg

DRUGS (1)
  1. BLEPHAMIDE [Suspect]
     Active Substance: PREDNISOLONE ACETATE\SULFACETAMIDE SODIUM
     Dosage: 3.5 ML  2-3 TIMES PER WEEK  OPHTHALMIC
     Route: 047
     Dates: start: 20150723, end: 20150825

REACTIONS (2)
  - Foreign body in eye [None]
  - Eye pain [None]

NARRATIVE: CASE EVENT DATE: 20150826
